FAERS Safety Report 17853768 (Version 1)
Quarter: 2020Q2

REPORT INFORMATION
  Report Type: Spontaneous
  Country: CN (occurrence: CN)
  Receive Date: 20200603
  Receipt Date: 20200603
  Transmission Date: 20200714
  Serious: Yes (Other)
  Sender: FDA-Public Use
  Company Number: CN-ASTRAZENECA-2020SE70168

PATIENT
  Age: 13304 Day
  Sex: Male
  Weight: 70 kg

DRUGS (5)
  1. ROSUVASTATIN CALCIUM. [Concomitant]
     Active Substance: ROSUVASTATIN CALCIUM
     Indication: DIABETIC KETOACIDOSIS
     Route: 048
     Dates: start: 20200430, end: 20200430
  2. SODIUM CHLORIDE INJECTION [Concomitant]
     Active Substance: SODIUM CHLORIDE
     Route: 041
     Dates: start: 20200428
  3. MAITEMEI [Concomitant]
     Indication: DIABETIC KETOACIDOSIS
     Route: 048
     Dates: start: 20200430, end: 20200430
  4. ONGLYZA [Suspect]
     Active Substance: SAXAGLIPTIN HYDROCHLORIDE
     Indication: DIABETIC KETOACIDOSIS
     Route: 048
     Dates: start: 20200429, end: 20200430
  5. LEVOFLOXACIN HYDROCHLORIDE [Concomitant]
     Active Substance: LEVOFLOXACIN HYDROCHLORIDE
     Route: 041
     Dates: start: 20200428

REACTIONS (1)
  - Hepatic enzyme increased [Unknown]

NARRATIVE: CASE EVENT DATE: 20200430
